FAERS Safety Report 5470819-7 (Version None)
Quarter: 2007Q3

REPORT INFORMATION
  Report Type: 
  Country: None (occurrence: None)
  Receive Date: 20070928
  Receipt Date: 20070919
  Transmission Date: 20080115
  Serious: Yes (Hospitalization)
  Sender: FDA-Public Use
  Company Number: DE-AMGEN-US244516

PATIENT
  Age: 80 Year

DRUGS (5)
  1. ENBREL [Suspect]
     Indication: RHEUMATOID ARTHRITIS
     Route: 058
     Dates: start: 20070601
  2. ENBREL [Suspect]
     Dosage: UNKNOWN
     Route: 058
  3. PREDNISOLONE [Concomitant]
     Dosage: 2.5 MG DAILY
     Dates: start: 20070101
  4. PREDNISOLONE [Concomitant]
     Dosage: UNKNOWN
     Dates: start: 20070101, end: 20070101
  5. METHOTREXATE SODIUM [Concomitant]
     Indication: RHEUMATOID ARTHRITIS
     Dosage: UNKNOWN
     Dates: start: 20070601

REACTIONS (3)
  - CONDITION AGGRAVATED [None]
  - HEART VALVE OPERATION [None]
  - RHEUMATOID ARTHRITIS [None]
